FAERS Safety Report 8269457-2 (Version None)
Quarter: 2012Q2

REPORT INFORMATION
  Report Type: 
  Country: None (occurrence: None)
  Receive Date: 20120409
  Receipt Date: 20120327
  Transmission Date: 20120825
  Serious: Yes (Hospitalization)
  Sender: FDA-Public Use
  Company Number: US-BAYER-2011-102795

PATIENT
  Age: 25 Year
  Sex: Female
  Weight: 97.506 kg

DRUGS (12)
  1. YAZ [Suspect]
     Indication: PREMENSTRUAL SYNDROME
  2. YASMIN [Suspect]
     Indication: ACNE
  3. TOPAMAX [Concomitant]
  4. QVAR 40 [Concomitant]
  5. YAZ [Suspect]
     Indication: CONTRACEPTION
     Dosage: UNK
     Dates: start: 20030601
  6. YAZ [Suspect]
     Indication: ACNE
  7. METFORMIN HCL [Concomitant]
  8. YASMIN [Suspect]
     Indication: CONTRACEPTION
     Dosage: UNK
     Dates: start: 20030601
  9. YASMIN [Suspect]
     Indication: PREMENSTRUAL SYNDROME
  10. ALBUTEROL [Concomitant]
  11. BYETTA [Concomitant]
  12. LEXAPRO [Concomitant]

REACTIONS (4)
  - PAIN [None]
  - CHOLECYSTITIS CHRONIC [None]
  - INJURY [None]
  - GALLBLADDER DISORDER [None]
